FAERS Safety Report 7327908-1 (Version None)
Quarter: 2011Q1

REPORT INFORMATION
  Report Type: 
  Country: None (occurrence: None)
  Receive Date: 20110303
  Receipt Date: 20110222
  Transmission Date: 20110831
  Serious: Yes (Other)
  Sender: FDA-Public Use
  Company Number: GB-AMGEN-GBRCT2010005244

PATIENT
  Age: 70 Year
  Sex: Female
  Weight: 63.991 kg

DRUGS (2)
  1. LEFLUNOMIDE [Concomitant]
     Dosage: UNK
     Dates: start: 20050317
  2. ETANERCEPT [Suspect]
     Indication: PSORIATIC ARTHROPATHY

REACTIONS (1)
  - SKIN CANCER [None]
